FAERS Safety Report 20365364 (Version 2)
Quarter: 2022Q1

REPORT INFORMATION
  Report Type: Spontaneous
  Country: FR (occurrence: FR)
  Receive Date: 20220122
  Receipt Date: 20220201
  Transmission Date: 20220423
  Serious: Yes (Death)
  Sender: FDA-Public Use
  Company Number: None

PATIENT
  Age: 50 Year
  Sex: Female

DRUGS (5)
  1. DIAZEPAM [Suspect]
     Active Substance: DIAZEPAM
     Route: 065
  2. STRONTIUM [Suspect]
     Active Substance: STRONTIUM
     Route: 065
  3. ALCOHOL [Suspect]
     Active Substance: ALCOHOL
     Route: 065
  4. METHADONE [Suspect]
     Active Substance: METHADONE HYDROCHLORIDE
     Route: 065
  5. OXAZEPAM [Suspect]
     Active Substance: OXAZEPAM
     Route: 065

REACTIONS (1)
  - Death [Fatal]
